FAERS Safety Report 15967922 (Version 4)
Quarter: 2019Q1

REPORT INFORMATION
  Report Type: Spontaneous
  Country: JP (occurrence: JP)
  Receive Date: 20190215
  Receipt Date: 20190322
  Transmission Date: 20190418
  Serious: Yes (Death, Hospitalization, Other)
  Sender: FDA-Public Use
  Company Number: JP-ASTRAZENECA-2019SE25697

PATIENT
  Age: 24264 Day
  Sex: Female
  Weight: 35 kg

DRUGS (2)
  1. TAGRISSO [Suspect]
     Active Substance: OSIMERTINIB
     Indication: NON-SMALL CELL LUNG CANCER
     Route: 048
     Dates: start: 20181018, end: 20190109
  2. IRESSA [Suspect]
     Active Substance: GEFITINIB
     Indication: NON-SMALL CELL LUNG CANCER
     Route: 048
     Dates: start: 20180327

REACTIONS (9)
  - Lymphangiosis carcinomatosa [Unknown]
  - Cardiac failure congestive [Fatal]
  - Cardiomegaly [Unknown]
  - Pericardial effusion [Unknown]
  - Metastases to heart [Unknown]
  - Condition aggravated [Unknown]
  - Malignant neoplasm progression [Unknown]
  - Metastases to lymph nodes [Unknown]
  - Influenza A virus test positive [Fatal]

NARRATIVE: CASE EVENT DATE: 20190110
